FAERS Safety Report 15166494 (Version 2)
Quarter: 2019Q3

REPORT INFORMATION
  Report Type: Spontaneous
  Country: US (occurrence: US)
  Receive Date: 20180719
  Receipt Date: 20190723
  Transmission Date: 20191004
  Serious: No
  Sender: FDA-Public Use
  Company Number: US-OTSUKA-2018_011945

PATIENT
  Sex: Male
  Weight: 97.51 kg

DRUGS (9)
  1. REXULTI [Suspect]
     Active Substance: BREXPIPRAZOLE
     Indication: BIPOLAR II DISORDER
     Dosage: 2 MG, QD (QHS)
     Route: 048
     Dates: start: 20180519
  2. REXULTI [Suspect]
     Active Substance: BREXPIPRAZOLE
     Indication: CYCLOTHYMIC DISORDER
     Dosage: 0.5 MG, QD
     Route: 048
     Dates: start: 20180509
  3. REXULTI [Suspect]
     Active Substance: BREXPIPRAZOLE
     Indication: MAJOR DEPRESSION
     Dosage: 1 MG, QD (QHS)
     Route: 048
     Dates: start: 20180514
  4. REXULTI [Suspect]
     Active Substance: BREXPIPRAZOLE
     Dosage: 0.75 MG (0.5 MG TABLET PLUS ONE-HALF OF A 0.5 MG TABLET), QD
     Route: 065
     Dates: start: 20180512
  5. ABILIFY [Suspect]
     Active Substance: ARIPIPRAZOLE
     Indication: BIPOLAR DISORDER
     Dosage: 10 MG, UNK
     Route: 065
  6. REXULTI [Suspect]
     Active Substance: BREXPIPRAZOLE
     Indication: SPEECH DISORDER DEVELOPMENTAL
     Dosage: 0.25 MG (ONE-HALF OF 0.5 MG TABLET), QD
     Route: 065
     Dates: start: 20180507
  7. ABILIFY [Suspect]
     Active Substance: ARIPIPRAZOLE
     Indication: MAJOR DEPRESSION
     Dosage: 5 MG, UNK
     Route: 065
  8. REXULTI [Suspect]
     Active Substance: BREXPIPRAZOLE
     Indication: BIPOLAR I DISORDER
     Dosage: 1.5 MG, QD
     Route: 048
  9. REXULTI [Suspect]
     Active Substance: BREXPIPRAZOLE
     Indication: PSYCHOTIC DISORDER
     Dosage: 3 MG, UNK
     Route: 065
     Dates: start: 2018

REACTIONS (13)
  - Weight increased [Not Recovered/Not Resolved]
  - Tardive dyskinesia [Recovered/Resolved]
  - Compulsions [Not Recovered/Not Resolved]
  - Logorrhoea [Not Recovered/Not Resolved]
  - Insomnia [Unknown]
  - Scrotal swelling [Unknown]
  - Eating disorder [Not Recovered/Not Resolved]
  - Drug hypersensitivity [Unknown]
  - Increased appetite [Not Recovered/Not Resolved]
  - Underdose [Unknown]
  - Product use in unapproved indication [Unknown]
  - Food craving [Not Recovered/Not Resolved]
  - Drug ineffective [Unknown]

NARRATIVE: CASE EVENT DATE: 2018
